FAERS Safety Report 4551784-3 (Version None)
Quarter: 2005Q1

REPORT INFORMATION
  Report Type: 
  Country: None (occurrence: None)
  Receive Date: 20050110
  Receipt Date: 20041227
  Transmission Date: 20050727
  Serious: Yes (Death)
  Sender: FDA-Public Use
  Company Number: 2005002092

PATIENT
  Age: 72 Year
  Sex: Female
  Weight: 90 kg

DRUGS (18)
  1. SOLU-MEDROL [Suspect]
     Indication: MONARTHRITIS
     Dosage: 60 MG (DAILY), INTRAVENOUS
     Route: 042
     Dates: start: 20040822, end: 20040830
  2. PERINDOPRIL            (PERINDOPRIL) [Suspect]
     Indication: CARDIAC FAILURE
     Dosage: 2 MG (DAILY), ORAL
     Route: 048
     Dates: start: 19951011, end: 20040831
  3. NITROGLYCERIN [Suspect]
     Indication: CARDIAC FAILURE
     Dosage: 10 MG (DAILY), TRANSDERMAL
     Route: 062
     Dates: start: 19951011, end: 20040831
  4. ROFECOXIB [Suspect]
     Indication: POLYARTHRITIS
     Dosage: 25 MG (DAILY), ORAL
     Route: 048
     Dates: start: 20040825, end: 20040831
  5. ENBREL [Suspect]
     Indication: POLYARTHRITIS
     Dosage: 25 MG (WEEKLY), SUBCUTANEOUSLY
     Route: 058
     Dates: start: 20010611, end: 20040821
  6. ACETYLSALICYLIC ACID SRT [Suspect]
     Indication: CARDIAC FAILURE
     Dosage: 160 MG (DAILY), ORAL
     Route: 048
     Dates: start: 19951011, end: 20040831
  7. AMLODIPINE BESYLATE [Concomitant]
  8. VERAPAMIL HCL [Concomitant]
  9. SIMVASTATIN [Concomitant]
  10. ROSUVASTATIN                         (ROSUVASTATIN) [Concomitant]
  11. METHYLPREDNISOLONE [Concomitant]
  12. HYDROXYCHLOROQUINE SULFATE [Concomitant]
  13. AUROTIOPROL                 (AUROTIOPROL) [Concomitant]
  14. METHOTREXATE [Concomitant]
  15. NIFUROXAZIDE                   (NIFUROXAZIDE) [Concomitant]
  16. TRIMEBUTINE                  (TRIMEBUTINE) [Concomitant]
  17. ULTRALEVURE               (SACCHAROMYCES BOULARDII) [Concomitant]
  18. SPASFON                     (PHLOROGLUCINOL, TRIMETHYLPHLOROGLUCINOL) [Concomitant]

REACTIONS (8)
  - COLITIS [None]
  - ERYTHEMA [None]
  - GASTRITIS [None]
  - GASTROINTESTINAL DISORDER [None]
  - INTESTINAL PERFORATION [None]
  - MONARTHRITIS [None]
  - PERITONITIS [None]
  - PNEUMOPERITONEUM [None]
